FAERS Safety Report 6349804-9 (Version None)
Quarter: 2009Q3

REPORT INFORMATION
  Report Type: 
  Country: None (occurrence: None)
  Receive Date: 20090911
  Receipt Date: 20090831
  Transmission Date: 20100115
  Serious: Yes (Hospitalization, Other)
  Sender: FDA-Public Use
  Company Number: US-MERCK-0901USA00886

PATIENT
  Age: 65 Year
  Sex: Female

DRUGS (8)
  1. FOSAMAX PLUS D [Suspect]
     Indication: RESORPTION BONE INCREASED
     Route: 048
     Dates: start: 20050101, end: 20070101
  2. FOSAMAX PLUS D [Suspect]
     Indication: OSTEOPENIA
     Route: 048
     Dates: start: 20050101, end: 20070101
  3. PREMARIN [Concomitant]
     Route: 065
     Dates: start: 19900101
  4. PROVERA [Concomitant]
     Route: 065
     Dates: start: 20020801
  5. FOSAMAX [Suspect]
     Indication: RESORPTION BONE INCREASED
     Route: 048
     Dates: start: 20060701, end: 20061001
  6. FOSAMAX [Suspect]
     Route: 048
     Dates: start: 20050201, end: 20070301
  7. FOSAMAX [Suspect]
     Indication: OSTEOPENIA
     Route: 048
     Dates: start: 20060701, end: 20061001
  8. FOSAMAX [Suspect]
     Route: 048
     Dates: start: 20050201, end: 20070301

REACTIONS (23)
  - ADENOMA BENIGN [None]
  - AORTIC ARTERIOSCLEROSIS [None]
  - CYSTITIS [None]
  - FALL [None]
  - FATIGUE [None]
  - FOOT FRACTURE [None]
  - GINGIVITIS [None]
  - GLUCOSE TOLERANCE IMPAIRED [None]
  - HYPERLIPIDAEMIA [None]
  - MENOPAUSAL SYMPTOMS [None]
  - ORAL VIRAL INFECTION [None]
  - OSTEOARTHRITIS [None]
  - OSTEONECROSIS [None]
  - PAIN [None]
  - RASH ERYTHEMATOUS [None]
  - RESORPTION BONE INCREASED [None]
  - SEBORRHOEIC KERATOSIS [None]
  - URETEROCELE [None]
  - URINARY TRACT INFECTION [None]
  - UTERINE PROLAPSE [None]
  - UTEROVAGINAL PROLAPSE [None]
  - VAGINAL HAEMORRHAGE [None]
  - VULVOVAGINAL DRYNESS [None]
